FAERS Safety Report 8791150 (Version 1)
Quarter: 2012Q4

REPORT INFORMATION
  Report Type: Spontaneous
  Country: US (occurrence: None)
  Receive Date: 20120913
  Receipt Date: 20120913
  Transmission Date: 20130627
  Serious: Yes (Other)
  Sender: FDA-Public Use
  Company Number: None

PATIENT
  Sex: Male
  Weight: 142.88 kg

DRUGS (1)
  1. PRADAXA [Suspect]
     Indication: ATRIAL FIBRILLATION
     Dosage: 150 mg. 2 times daily
     Dates: start: 201206, end: 20120824

REACTIONS (4)
  - Dyspnoea [None]
  - Dyspepsia [None]
  - Dyspepsia [None]
  - Dyspepsia [None]
